FAERS Safety Report 4378634-2 (Version None)
Quarter: 2004Q2

REPORT INFORMATION
  Report Type: 
  Country: None (occurrence: None)
  Receive Date: 20040609
  Receipt Date: 20040531
  Transmission Date: 20050107
  Serious: Yes (Other)
  Sender: FDA-Public Use
  Company Number: HQWYE170502JUN04

PATIENT
  Age: 48 Year
  Sex: Female

DRUGS (11)
  1. RAPAMUNE [Suspect]
     Indication: PROPHYLAXIS AGAINST TRANSPLANT REJECTION
     Dosage: 4 MG 1X PER 1 DAY, ORAL
     Route: 048
     Dates: start: 20030709
  2. AZATHIOPRINE [Suspect]
     Indication: PROPHYLAXIS AGAINST TRANSPLANT REJECTION
  3. PREDNISONE TAB [Suspect]
     Indication: PROPHYLAXIS AGAINST TRANSPLANT REJECTION
     Dosage: 5 MG 1X PER 1 DAY
  4. ERYTHROPOIETIN (ERYTHROPOIETIN) [Concomitant]
  5. DILTIAZEM [Concomitant]
  6. ZOCOR [Concomitant]
  7. ZOLOFT [Concomitant]
  8. RAMIPRIL [Concomitant]
  9. OMEPRAZOLE [Concomitant]
  10. FLUCLOXACILLIN (FLUCLOXACILLIN) [Concomitant]
  11. COXYCYCLINE (DOXYCYCLINE) [Concomitant]

REACTIONS (10)
  - ACIDOSIS [None]
  - AZOTAEMIA [None]
  - BLOOD FOLATE ABNORMAL [None]
  - BLOOD PARATHYROID HORMONE ABNORMAL [None]
  - DRUG EFFECT DECREASED [None]
  - FLUID OVERLOAD [None]
  - GRAFT LOSS [None]
  - MEDICATION ERROR [None]
  - REFRACTORY ANAEMIA [None]
  - TRANSPLANT FAILURE [None]
